FAERS Safety Report 7267417-1 (Version None)
Quarter: 2011Q1

REPORT INFORMATION
  Report Type: 
  Country: None (occurrence: None)
  Receive Date: 20110201
  Receipt Date: 20110126
  Transmission Date: 20110831
  Serious: Yes (Hospitalization, Other)
  Sender: FDA-Public Use
  Company Number: US-TYCO HEALTHCARE/MALLINCKRODT-T200901783

PATIENT
  Sex: Female

DRUGS (23)
  1. MAGNEVIST [Suspect]
     Indication: NUCLEAR MAGNETIC RESONANCE IMAGING BRAIN
     Dosage: 16 ML, UNK
     Dates: start: 20001002, end: 20001002
  2. GADOLINIUM [Suspect]
     Indication: SCAN BRAIN
     Dosage: UNK
     Dates: start: 20000829, end: 20000829
  3. PHOSLO [Concomitant]
     Dosage: 667 MG, UNK
  4. PROTONIX [Concomitant]
     Dosage: 40 MG, QD
  5. ZEMPLAR [Concomitant]
     Indication: HAEMODIALYSIS
     Dosage: 3 MCG, 3X PER WEEK
  6. PANTOPRAZOLE [Concomitant]
     Dosage: 40 MG, UNK
  7. LYRICA [Concomitant]
     Dosage: 50 MG, QD
  8. OPTIMARK [Suspect]
     Dosage: UNK
     Dates: start: 20060922, end: 20060922
  9. NEPHROCAPS [Concomitant]
     Dosage: 1 DAILY
  10. RESTORIL [Concomitant]
     Dosage: 1 TAB AT BEDTIME
  11. OPTIMARK [Suspect]
     Indication: NUCLEAR MAGNETIC RESONANCE IMAGING BRAIN
     Dosage: UNK
     Dates: start: 20060203, end: 20060203
  12. MAGNEVIST [Suspect]
     Indication: ANGIOGRAM
     Dosage: 17 ML, UNK
     Dates: start: 20001104, end: 20001104
  13. ZOLOFT [Concomitant]
     Dosage: 100 MG, QD
  14. MAGNEVIST [Suspect]
     Dosage: 30 ML
     Route: 042
     Dates: start: 20050707, end: 20050707
  15. PROPOXYPHENE HYDROCHLORIDE [Concomitant]
     Dosage: UNK
  16. ZOCOR [Concomitant]
     Dosage: 40 MG, QD
  17. MAGNEVIST [Suspect]
     Dosage: 15 ML, UNK
     Dates: start: 20001212, end: 20001212
  18. SENSIPAR [Concomitant]
     Dosage: 30 UNK, QD
  19. RENAGEL                            /01459901/ [Concomitant]
     Dosage: 1600 MG, BID
  20. DARVOCET [Concomitant]
     Dosage: 2 TABS Q6 HOURS PAIN PRN
  21. EPOGEN [Concomitant]
     Indication: HAEMODIALYSIS
     Dosage: 2,500 UNITS, 3X PER WEEK
  22. COUMADIN [Concomitant]
     Dosage: 4 MG, 1 TAB DAILY
  23. HEPARIN [Concomitant]
     Indication: HAEMODIALYSIS
     Dosage: 3 ML, 3X PER WEEK

REACTIONS (22)
  - PELVIC FRACTURE [None]
  - PNEUMONIA [None]
  - DIVERTICULUM [None]
  - EPISTAXIS [None]
  - HYPERSENSITIVITY [None]
  - ONYCHOMYCOSIS [None]
  - COLON ADENOMA [None]
  - DUODENAL POLYP [None]
  - INSOMNIA [None]
  - GASTROOESOPHAGEAL REFLUX DISEASE [None]
  - NEPHROGENIC SYSTEMIC FIBROSIS [None]
  - FRACTURED SACRUM [None]
  - OEDEMA PERIPHERAL [None]
  - COUGH [None]
  - ACETABULUM FRACTURE [None]
  - FIBROSIS [None]
  - FALL [None]
  - WOUND INFECTION STAPHYLOCOCCAL [None]
  - SKIN ULCER [None]
  - PSEUDOMONAS INFECTION [None]
  - FEMUR FRACTURE [None]
  - COLONIC POLYP [None]
